FAERS Safety Report 4480252-2 (Version None)
Quarter: 2004Q3

REPORT INFORMATION
  Report Type: 
  Country: None (occurrence: None)
  Receive Date: 20040923
  Receipt Date: 20040630
  Transmission Date: 20050211
  Serious: No
  Sender: FDA-Public Use
  Company Number: USA040463690

PATIENT
  Age: 82 Year
  Sex: Female
  Weight: 55 kg

DRUGS (5)
  1. FORTEO [Suspect]
     Indication: OSTEOPOROSIS
     Dosage: 20 UG DAY
     Dates: start: 20040330, end: 20040601
  2. FOSAMAX [Concomitant]
  3. LIPITOR [Concomitant]
  4. ACETYLSALICYLIC ACID SRT [Concomitant]
  5. MULTI-VITAMIN [Concomitant]

REACTIONS (9)
  - BACK PAIN [None]
  - CHEST PAIN [None]
  - CONSTIPATION [None]
  - FEELING ABNORMAL [None]
  - FLANK PAIN [None]
  - HEADACHE [None]
  - MUSCLE CRAMP [None]
  - NECK PAIN [None]
  - RASH [None]
